FAERS Safety Report 19485598 (Version 2)
Quarter: 2021Q3

REPORT INFORMATION
  Report Type: Other
  Country: JP (occurrence: JP)
  Receive Date: 20210702
  Receipt Date: 20210806
  Transmission Date: 20211014
  Serious: Yes (Hospitalization, Disabling)
  Sender: FDA-Public Use
  Company Number: JP-ROCHE-2738241

PATIENT
  Age: 85 Year
  Sex: Male
  Weight: 48 kg

DRUGS (5)
  1. CARBOPLATIN. [Suspect]
     Active Substance: CARBOPLATIN
     Route: 041
     Dates: end: 20210202
  2. CARBOPLATIN. [Suspect]
     Active Substance: CARBOPLATIN
     Indication: SMALL CELL LUNG CANCER EXTENSIVE STAGE
     Dosage: DOSE INTERVAL UNCERTAINTY
     Route: 041
     Dates: start: 20201109, end: 20201109
  3. ETOPOSIDE. [Suspect]
     Active Substance: ETOPOSIDE
     Indication: SMALL CELL LUNG CANCER EXTENSIVE STAGE
     Dosage: DOSE INTERVAL UNCERTAINTY
     Route: 041
     Dates: start: 20201109, end: 20201111
  4. ATEZOLIZUMAB. [Suspect]
     Active Substance: ATEZOLIZUMAB
     Indication: SMALL CELL LUNG CANCER EXTENSIVE STAGE
     Dosage: DOSE INTERVAL UNCERTAINTY
     Route: 041
     Dates: start: 20201109, end: 20210202
  5. ETOPOSIDE. [Suspect]
     Active Substance: ETOPOSIDE
     Route: 041
     Dates: end: 20210204

REACTIONS (5)
  - Hyperthyroidism [Recovered/Resolved]
  - Decreased appetite [Recovered/Resolved]
  - White blood cell count decreased [Recovered/Resolved]
  - Thrombocytopenia [Recovered/Resolved]
  - Retinopathy [Recovered/Resolved with Sequelae]

NARRATIVE: CASE EVENT DATE: 20201116
